FAERS Safety Report 6193378-2 (Version None)
Quarter: 2009Q2

REPORT INFORMATION
  Report Type: 
  Country: None (occurrence: None)
  Receive Date: 20090518
  Receipt Date: 20090507
  Transmission Date: 20091009
  Serious: Yes (Hospitalization, Other)
  Sender: FDA-Public Use
  Company Number: JP-JNJFOC-20080906414

PATIENT
  Sex: Female
  Weight: 61 kg

DRUGS (18)
  1. TRAMADOL HCL [Suspect]
     Dosage: 2-4 DOSE FREQUENCY
     Route: 048
     Dates: start: 20080715, end: 20090427
  2. TRAMADOL HCL [Suspect]
     Indication: PAIN
     Dosage: 3-8 DOSES, 2-6 DOSE FREQUENCY
     Route: 048
     Dates: start: 20080715, end: 20090427
  3. AZULFIDINE [Concomitant]
     Indication: ARTHRALGIA
     Route: 048
  4. PREDNISOLONE [Concomitant]
     Indication: ARTHRALGIA
     Route: 048
  5. CELECOXIB [Concomitant]
     Indication: ARTHRALGIA
     Route: 048
  6. SELBEX [Concomitant]
     Indication: GASTRITIS PROPHYLAXIS
     Route: 048
  7. FOSAMAC [Concomitant]
     Indication: OSTEOPOROSIS
     Route: 048
  8. SINLESTAL [Concomitant]
     Indication: HYPERLIPIDAEMIA
     Route: 048
  9. MAGNESIUM OXIDE [Concomitant]
     Indication: CONSTIPATION
     Route: 048
  10. PURSENNID [Concomitant]
     Indication: CONSTIPATION
     Route: 048
  11. LIPITOR [Concomitant]
     Indication: HYPERLIPIDAEMIA
     Route: 048
  12. LOXONIN [Concomitant]
     Route: 048
  13. XYLOCAINE [Concomitant]
     Indication: RHINITIS ALLERGIC
     Route: 065
  14. ZADITEN [Concomitant]
     Indication: RHINITIS ALLERGIC
     Route: 065
  15. BOSMIN [Concomitant]
     Indication: RHINITIS ALLERGIC
     Route: 065
  16. DECADRON [Concomitant]
     Indication: RHINITIS ALLERGIC
     Route: 065
  17. DISTILLED WATER [Concomitant]
     Indication: RHINITIS ALLERGIC
     Route: 065
  18. RABEPRAZOLE SODIUM [Concomitant]
     Indication: GASTROINTESTINAL DISORDER
     Route: 048

REACTIONS (4)
  - DIZZINESS [None]
  - NAUSEA [None]
  - PYELONEPHRITIS [None]
  - VOMITING [None]
